FAERS Safety Report 6110928-2 (Version None)
Quarter: 2009Q1

REPORT INFORMATION
  Report Type: 
  Country: None (occurrence: None)
  Receive Date: 20090311
  Receipt Date: 20090302
  Transmission Date: 20090719
  Serious: Yes (Other)
  Sender: FDA-Public Use
  Company Number: IT-ASTRAZENECA-2009AC00745

PATIENT
  Age: 36 Year
  Sex: Female

DRUGS (8)
  1. BUPIVACAINE [Suspect]
     Indication: ANALGESIA
     Route: 008
  2. LEVOBUPIVACAINE [Suspect]
     Route: 008
  3. LEVOBUPIVACAINE [Suspect]
     Route: 008
  4. LEVOBUPIVACAINE [Suspect]
     Route: 008
  5. LEVOBUPIVACAINE [Suspect]
     Route: 008
  6. SUFENTANIL [Suspect]
     Dosage: SPINAL SPACE
     Route: 065
  7. SUFENTANIL [Suspect]
     Dosage: 0.5 MG ML-1 (DELIVERED INTO THE PERIDURAL SPACE)
     Route: 065
  8. SUFENTANIL [Suspect]
     Dosage: 0.5 MG ML-1
     Route: 065

REACTIONS (1)
  - SUBDURAL HAEMATOMA [None]
